FAERS Safety Report 8773850 (Version 4)
Quarter: 2012Q4

REPORT INFORMATION
  Report Type: Report from Study
  Country: JP (occurrence: JP)
  Receive Date: 20120907
  Receipt Date: 20121130
  Transmission Date: 20130627
  Serious: Yes (Hospitalization)
  Sender: FDA-Public Use
  Company Number: JP-EISAI INC-E3810-05852-CLI-JP

PATIENT
  Age: 87 Year
  Sex: Female
  Weight: 93 kg

DRUGS (20)
  1. E3810 (RABEPRAZOLE) [Suspect]
     Indication: PROPHYLAXIS AGAINST GASTROINTESTINAL ULCER
     Dosage: UNKNOWN
     Route: 048
     Dates: start: 20120614, end: 20120830
  2. REZALTAS [Concomitant]
     Indication: HYPERTENSION
     Route: 048
     Dates: end: 20120830
  3. NATRIX [Concomitant]
     Indication: HYPERTENSION
     Route: 048
     Dates: end: 20120830
  4. CARDENALIN [Concomitant]
     Indication: HYPERTENSION
     Route: 048
     Dates: end: 20120830
  5. AMLODIPINE [Concomitant]
     Indication: HYPERTENSION
     Route: 048
     Dates: end: 20120830
  6. JANUVIA [Concomitant]
     Indication: DIABETES MELLITUS
     Route: 048
     Dates: end: 20120830
  7. GLIMEPIRIDE [Concomitant]
     Indication: DIABETES MELLITUS
     Route: 048
     Dates: end: 20120830
  8. GLIMEPIRIDE [Concomitant]
     Route: 048
     Dates: start: 20120906
  9. KINEDAK [Concomitant]
     Indication: DIABETIC PERIPHERAL NEUROPATHY
     Route: 048
     Dates: end: 20120830
  10. TRICOR [Concomitant]
     Indication: DYSLIPIDAEMIA
     Route: 048
     Dates: end: 20120830
  11. ALFACALCIDOL [Concomitant]
     Indication: OSTEOPOROSIS
     Route: 048
     Dates: end: 20120830
  12. ALFACALCIDOL [Concomitant]
     Route: 048
     Dates: start: 20120906
  13. ASPARA-CA [Concomitant]
     Indication: OSTEOPOROSIS
     Route: 048
     Dates: end: 20120830
  14. TAPROS [Concomitant]
     Indication: GLAUCOMA
     Route: 047
     Dates: end: 20120830
  15. HYALEIN [Concomitant]
     Indication: GLAUCOMA
     Route: 047
     Dates: end: 20120830
  16. BOIOGITO [Concomitant]
     Indication: OBESITY
     Route: 048
     Dates: end: 20120830
  17. KEISHIBUKURYOGAN [Concomitant]
     Indication: CLIMACTERIC DISTURBANCE
     Route: 048
     Dates: end: 20120830
  18. PRAMIPEXOLE [Concomitant]
     Indication: RESTLESS LEGS SYNDROME
     Route: 048
     Dates: end: 20120830
  19. BAYASPIRIN [Concomitant]
     Indication: CEREBROVASCULAR ACCIDENT PROPHYLAXIS
     Route: 048
     Dates: end: 20120830
  20. FLUMETHOLON [Concomitant]
     Indication: BLEPHARITIS
     Route: 047
     Dates: end: 20120830

REACTIONS (1)
  - Cholecystitis acute [Recovered/Resolved]
